FAERS Safety Report 11320249 (Version 1)
Quarter: 2015Q3

REPORT INFORMATION
  Report Type: Spontaneous
  Country: US (occurrence: US)
  Receive Date: 20150729
  Receipt Date: 20150729
  Transmission Date: 20151125
  Serious: Yes (Other)
  Sender: FDA-Public Use
  Company Number: US-PFIZER INC-2015238334

PATIENT
  Age: 29 Year
  Sex: Male

DRUGS (1)
  1. DILANTIN [Suspect]
     Active Substance: PHENYTOIN
     Indication: EPILEPSY
     Dosage: 100 MG, 3X/DAY
     Route: 048
     Dates: start: 194908

REACTIONS (10)
  - Abdominal pain [Recovering/Resolving]
  - Lymphadenopathy [Recovered/Resolved]
  - Hepatomegaly [Recovered/Resolved]
  - Eosinophilia [Recovering/Resolving]
  - Dermatitis exfoliative [Recovered/Resolved]
  - Toxicity to various agents [Unknown]
  - Jaundice [Recovering/Resolving]
  - Myalgia [Recovering/Resolving]
  - Pyrexia [Recovered/Resolved]
  - Rash morbilliform [Recovered/Resolved]
